FAERS Safety Report 5713133-4 (Version None)
Quarter: 2008Q2

REPORT INFORMATION
  Report Type: 
  Country: None (occurrence: None)
  Receive Date: 20080422
  Receipt Date: 20080414
  Transmission Date: 20081010
  Serious: Yes (Other)
  Sender: FDA-Public Use
  Company Number: JP-SANOFI-SYNTHELABO-A01200803896

PATIENT
  Age: 48 Year
  Sex: Female
  Weight: 47 kg

DRUGS (6)
  1. ISOVORIN [Concomitant]
     Dosage: 200 MG/M2
     Route: 041
     Dates: start: 20080212, end: 20080212
  2. DECADRON [Concomitant]
     Indication: PREMEDICATION
     Dosage: 8 MG
     Route: 042
     Dates: start: 20070823, end: 20080212
  3. KYTRIL [Concomitant]
     Indication: PREMEDICATION
     Dosage: 3 MG
     Route: 042
     Dates: start: 20070823, end: 20080212
  4. AVASTIN [Suspect]
     Dosage: 5MG/KG IN INFUSION ON DAY 1
     Route: 041
     Dates: start: 20080212, end: 20080212
  5. FLUOROURACIL [Suspect]
     Dosage: 400 MG/M2 IN BOLUS FOLLOWED BY 2400 MG/M2 AS CONTINUOUS INFUSION
     Route: 042
     Dates: start: 20080212, end: 20080212
  6. ELPLAT [Suspect]
     Indication: COLON CANCER
     Dosage: 85MG/M2 IN INFUSION ON DAY 1
     Route: 042
     Dates: start: 20080212, end: 20080212

REACTIONS (1)
  - GASTROINTESTINAL PERFORATION [None]
